FAERS Safety Report 20142736 (Version 1)
Quarter: 2021Q4

REPORT INFORMATION
  Report Type: Spontaneous
  Country: US (occurrence: None)
  Receive Date: 20211202
  Receipt Date: 20211202
  Transmission Date: 20220303
  Serious: No
  Sender: FDA-Public Use
  Company Number: US-ROCHE-2855289

PATIENT
  Age: 78 Year
  Sex: Female
  Weight: 59.928 kg

DRUGS (1)
  1. LUCENTIS [Suspect]
     Active Substance: RANIBIZUMAB
     Indication: Neovascular age-related macular degeneration
     Route: 050
     Dates: start: 20210617

REACTIONS (1)
  - Eye disorder [Recovered/Resolved]

NARRATIVE: CASE EVENT DATE: 20210617
